FAERS Safety Report 8509131-8 (Version None)
Quarter: 2012Q3

REPORT INFORMATION
  Report Type: 
  Country: None (occurrence: None)
  Receive Date: 20120713
  Receipt Date: 20120704
  Transmission Date: 20120928
  Serious: Yes (Hospitalization)
  Sender: FDA-Public Use
  Company Number: US-GLAXOSMITHKLINE-A0984146A

PATIENT
  Sex: Male

DRUGS (1)
  1. PAXIL [Suspect]
     Indication: POST-TRAUMATIC STRESS DISORDER
     Route: 065

REACTIONS (5)
  - DISCOMFORT [None]
  - POST-TRAUMATIC STRESS DISORDER [None]
  - WITHDRAWAL SYNDROME [None]
  - SUICIDE ATTEMPT [None]
  - PAIN [None]
